FAERS Safety Report 6535196-9 (Version None)
Quarter: 2010Q1

REPORT INFORMATION
  Report Type: 
  Country: None (occurrence: None)
  Receive Date: 20100111
  Receipt Date: 20100111
  Transmission Date: 20100710
  Serious: Yes (Disabling, Other)
  Sender: FDA-Public Use
  Company Number: None

PATIENT
  Sex: Female
  Weight: 76.2043 kg

DRUGS (2)
  1. DEX PAK 10 DAYS 1.5 MGS. [Suspect]
     Indication: LABYRINTHITIS
     Dosage: 6 TABLETS 4 DAY/2 DAY/2 DAY/1 5 DAY/1 NIGHT 3 DAY/2 DAY/2 DAY/1
     Dates: start: 20091201
  2. DEX PAK 10 DAYS 1.5 MGS. [Suspect]
     Indication: LABYRINTHITIS
     Dosage: 6 TABLETS 4 DAY/2 DAY/2 DAY/1 5 DAY/1 NIGHT 3 DAY/2 DAY/2 DAY/1
     Dates: start: 20091210

REACTIONS (16)
  - ASTHENIA [None]
  - BACK PAIN [None]
  - DECREASED APPETITE [None]
  - EYE DISORDER [None]
  - HEADACHE [None]
  - INCREASED APPETITE [None]
  - INSOMNIA [None]
  - MOOD ALTERED [None]
  - MUSCLE SPASMS [None]
  - MUSCLE TWITCHING [None]
  - NIGHT SWEATS [None]
  - OEDEMA PERIPHERAL [None]
  - PAIN [None]
  - PERSONALITY CHANGE [None]
  - SENSATION OF FOREIGN BODY [None]
  - WEIGHT INCREASED [None]
